FAERS Safety Report 8530785-4 (Version None)
Quarter: 2012Q3

REPORT INFORMATION
  Report Type: 
  Country: None (occurrence: None)
  Receive Date: 20120723
  Receipt Date: 20120629
  Transmission Date: 20120928
  Serious: Yes (Life-Threatening, Hospitalization)
  Sender: FDA-Public Use
  Company Number: CL-SANOFI-AVENTIS-2010SA029550

PATIENT
  Age: 57 Year
  Sex: Male

DRUGS (9)
  1. LEVOXYL [Concomitant]
     Indication: HYPOTHYROIDISM
     Dates: start: 20060301
  2. COUMADIN [Concomitant]
     Indication: PULMONARY EMBOLISM
     Dates: start: 20080901
  3. CARVEDILOL [Concomitant]
     Indication: HYPERTENSION
     Route: 065
     Dates: start: 20090101
  4. LANTUS [Suspect]
     Route: 058
     Dates: start: 20051025
  5. OPTIPEN [Suspect]
  6. PLACEBO [Suspect]
     Dates: start: 20051025
  7. LASIX [Concomitant]
     Dates: start: 20051001
  8. SIMVASTATIN [Concomitant]
     Dates: start: 20080101
  9. LISINOPRIL [Concomitant]
     Indication: HYPERTENSION
     Dates: start: 20100401

REACTIONS (6)
  - HYPOGLYCAEMIA [None]
  - CHEST PAIN [None]
  - HYPERHIDROSIS [None]
  - CHEST DISCOMFORT [None]
  - DIZZINESS [None]
  - MENTAL STATUS CHANGES [None]
